FAERS Safety Report 18010939 (Version 5)
Quarter: 2022Q2

REPORT INFORMATION
  Report Type: Spontaneous
  Country: ES (occurrence: ES)
  Receive Date: 20200710
  Receipt Date: 20220414
  Transmission Date: 20220721
  Serious: Yes (Hospitalization, Other)
  Sender: FDA-Public Use
  Company Number: None

PATIENT
  Age: 39 Year
  Sex: Male

DRUGS (3)
  1. PIPERACILLIN SODIUM\TAZOBACTAM SODIUM [Suspect]
     Active Substance: PIPERACILLIN SODIUM\TAZOBACTAM SODIUM
     Indication: Respiratory tract infection
     Dosage: 4 G, Q8H
     Route: 065
     Dates: start: 20200507, end: 20200526
  2. METAMIZOLE MAGNESIUM [Suspect]
     Active Substance: METAMIZOLE MAGNESIUM
     Indication: Gastrointestinal disorder
     Dosage: 2 G AMPOULE
     Route: 048
     Dates: start: 20200526, end: 20200527
  3. KALYDECO [Suspect]
     Active Substance: IVACAFTOR
     Indication: Cystic fibrosis
     Dosage: HALF DOSE
     Route: 048
     Dates: start: 20200518, end: 20200518

REACTIONS (10)
  - Lymphopenia [Recovering/Resolving]
  - Pneumonia [Recovering/Resolving]
  - Generalised oedema [Unknown]
  - Acute respiratory failure [Recovering/Resolving]
  - Hypotension [Recovering/Resolving]
  - Hyperbilirubinaemia [Recovering/Resolving]
  - Toxic epidermal necrolysis [Recovering/Resolving]
  - Neutropenia [Recovered/Resolved]
  - Thrombocytopenia [Recovering/Resolving]
  - Rash erythematous [Not Recovered/Not Resolved]

NARRATIVE: CASE EVENT DATE: 20200101
